FAERS Safety Report 18942227 (Version 2)
Quarter: 2021Q1

REPORT INFORMATION
  Report Type: Spontaneous
  Country: US (occurrence: US)
  Receive Date: 20210225
  Receipt Date: 20210317
  Transmission Date: 20210420
  Serious: No
  Sender: FDA-Public Use
  Company Number: US-BAUSCH-BL-2021-003854

PATIENT
  Age: 38 Year
  Sex: Male
  Weight: 74.91 kg

DRUGS (5)
  1. LOTEMAX [Suspect]
     Active Substance: LOTEPREDNOL ETABONATE
     Indication: POSTOPERATIVE CARE
     Dosage: 1 DROP IN BOTH EYES, USING IT FOR 5 YEARS NOW FOR CORNEAL TRANSPLANT
     Route: 047
     Dates: end: 202101
  2. LOTEMAX SUSPENSION [Concomitant]
     Indication: POSTOPERATIVE CARE
     Dosage: AROUND 10 YEARS AGO, 1 DROP IN THE RIGHT EYE ONCE DAILY
     Route: 065
  3. LOTEMAX [Suspect]
     Active Substance: LOTEPREDNOL ETABONATE
     Route: 047
  4. LOTEMAX SUSPENSION [Concomitant]
     Dosage: RECENTLY
     Route: 065
  5. SYSTANE (HYPROMELLOSE 2910 (4000 MPA.S)) [Concomitant]
     Active Substance: HYPROMELLOSE 2910 (4000 MPA.S)
     Indication: PRODUCT USED FOR UNKNOWN INDICATION
     Dosage: AS NEEDED

REACTIONS (2)
  - Eye pain [Recovered/Resolved]
  - Inappropriate schedule of product administration [Unknown]
